FAERS Safety Report 19198780 (Version 1)
Quarter: 2021Q2

REPORT INFORMATION
  Report Type: Spontaneous
  Country: NO (occurrence: NO)
  Receive Date: 20210429
  Receipt Date: 20210429
  Transmission Date: 20210717
  Serious: Yes (Disabling, Other)
  Sender: FDA-Public Use
  Company Number: NO-ASTRAZENECA-2021A344088

PATIENT
  Age: 36 Year
  Sex: Female
  Weight: 60 kg

DRUGS (3)
  1. SEROQUEL [Suspect]
     Active Substance: QUETIAPINE FUMARATE
     Indication: DEPRESSION
     Dosage: 1 TABLET EVENING
     Route: 048
     Dates: start: 20210409, end: 20210411
  2. VITAMIN D [Concomitant]
     Active Substance: VITAMIN D NOS
  3. SEROQUEL [Suspect]
     Active Substance: QUETIAPINE FUMARATE
     Indication: ANXIETY
     Dosage: 1 TABLET EVENING
     Route: 048
     Dates: start: 20210409, end: 20210411

REACTIONS (9)
  - Headache [Unknown]
  - Discomfort [Unknown]
  - Photophobia [Unknown]
  - Palpitations [Unknown]
  - Hallucination [Not Recovered/Not Resolved]
  - Mental impairment [Unknown]
  - Disorientation [Unknown]
  - General physical health deterioration [Unknown]
  - Drug ineffective [Unknown]

NARRATIVE: CASE EVENT DATE: 20210409
